FAERS Safety Report 25556923 (Version 4)
Quarter: 2025Q4

REPORT INFORMATION
  Report Type: Spontaneous
  Country: US (occurrence: US)
  Receive Date: 20250715
  Receipt Date: 20251124
  Transmission Date: 20260117
  Serious: No
  Sender: BIOGEN
  Company Number: US-BIOGEN-2025BI01316870

PATIENT
  Age: 38 Year
  Sex: Female

DRUGS (4)
  1. VUMERITY [Suspect]
     Active Substance: DIROXIMEL FUMARATE
     Indication: Multiple sclerosis
     Dosage: DOSAGE TEXT:231MG TWICE DAILY FOR 7 DAYS
     Dates: start: 20250824, end: 20250830
  2. VUMERITY [Suspect]
     Active Substance: DIROXIMEL FUMARATE
     Dosage: DOSAGE TEXT:462MG TWICE DAILY
     Dates: start: 20250831
  3. AQUAPHOR [Concomitant]
     Active Substance: PETROLATUM
     Indication: Product used for unknown indication
  4. TYLENOL [Concomitant]
     Active Substance: ACETAMINOPHEN

REACTIONS (10)
  - Pain [Not Recovered/Not Resolved]
  - Dementia [Unknown]
  - Pain in extremity [Unknown]
  - Skin discolouration [Recovered/Resolved with Sequelae]
  - Dry skin [Not Recovered/Not Resolved]
  - Hypersomnia [Unknown]
  - Somnolence [Unknown]
  - Scratch [Unknown]
  - Erythema [Unknown]
  - Scab [Unknown]

NARRATIVE: CASE EVENT DATE: 20250101
